FAERS Safety Report 8771154 (Version 1)
Quarter: 2012Q4

REPORT INFORMATION
  Report Type: 
  Country: US (occurrence: US)
  Receive Date: 20120906
  Receipt Date: 20120906
  Transmission Date: 20130627
  Serious: Yes (Hospitalization, Other)
  Sender: FDA-Public Use
  Company Number: US-TEVA-357481USA

PATIENT
  Age: 17 Month
  Sex: Female

DRUGS (2)
  1. OXCARBAZEPINE [Suspect]
     Indication: PARTIAL SEIZURES WITH SECONDARY GENERALISATION
     Dosage: 14 mg/kg/day
     Route: 065
  2. LEVETIRACETAM [Concomitant]
     Indication: PARTIAL SEIZURES WITH SECONDARY GENERALISATION
     Dosage: 25 mg/kg/day
     Route: 065

REACTIONS (1)
  - Infantile spasms [Recovered/Resolved]
